FAERS Safety Report 9072632 (Version 2)
Quarter: 2013Q1

REPORT INFORMATION
  Report Type: Spontaneous
  Country: US (occurrence: US)
  Receive Date: 20130207
  Receipt Date: 20130315
  Transmission Date: 20140127
  Serious: Yes (Death, Disabling, Other)
  Sender: FDA-Public Use
  Company Number: US-ASTELLAS-2013US001239

PATIENT
  Age: 70 Year
  Sex: Male

DRUGS (1)
  1. XTANDI [Suspect]
     Indication: PROSTATE CANCER
     Dosage: 160 MG, UID/QD
     Route: 048
     Dates: start: 20120103, end: 20130111

REACTIONS (9)
  - Death [Fatal]
  - Abasia [Unknown]
  - Transfusion [Unknown]
  - Musculoskeletal disorder [Unknown]
  - Dysstasia [Unknown]
  - Nervousness [Unknown]
  - Hypersomnia [Unknown]
  - Decreased appetite [Unknown]
  - Restlessness [Unknown]
